FAERS Safety Report 21882725 (Version 1)
Quarter: 2023Q1

REPORT INFORMATION
  Report Type: Report from Study
  Country: US (occurrence: US)
  Receive Date: 20230119
  Receipt Date: 20230119
  Transmission Date: 20230418
  Serious: Yes (Hospitalization)
  Sender: FDA-Public Use
  Company Number: US-ABBVIE-4275474

PATIENT
  Sex: Male

DRUGS (2)
  1. IMBRUVICA [Suspect]
     Active Substance: IBRUTINIB
     Indication: Waldenstrom^s macroglobulinaemia
     Route: 048
     Dates: start: 20210222
  2. IMBRUVICA [Suspect]
     Active Substance: IBRUTINIB
     Indication: Waldenstrom^s macroglobulinaemia
     Route: 048

REACTIONS (8)
  - Chest pain [Unknown]
  - Fatigue [Unknown]
  - Contusion [Unknown]
  - Renal impairment [Recovering/Resolving]
  - Heart rate increased [Unknown]
  - Blood pressure fluctuation [Unknown]
  - Coronary artery stenosis [Unknown]
  - Intentional product misuse [Unknown]
